FAERS Safety Report 19770702 (Version 1)
Quarter: 2021Q3

REPORT INFORMATION
  Report Type: Spontaneous
  Country: JP (occurrence: JP)
  Receive Date: 20210901
  Receipt Date: 20210901
  Transmission Date: 20211014
  Serious: Yes (Hospitalization)
  Sender: FDA-Public Use
  Company Number: JP-TEVA-2021-JP-1946854

PATIENT
  Age: 73 Year
  Sex: Female

DRUGS (15)
  1. PREDNISOLONE. [Suspect]
     Active Substance: PREDNISOLONE
     Indication: DERMATOMYOSITIS
  2. METHYLPREDNISOLONE. [Suspect]
     Active Substance: METHYLPREDNISOLONE
     Indication: ANTI-MELANOMA DIFFERENTIATION-ASSOCIATED PROTEIN 5 ANTIBODY POSITIVE
     Dosage: THREE TIMES PER DAY (PULSE THERAPY)
     Route: 065
  3. METHYLPREDNISOLONE. [Suspect]
     Active Substance: METHYLPREDNISOLONE
     Indication: DERMATOMYOSITIS
     Dosage: 500 MILLIGRAM DAILY;
     Route: 065
  4. CYCLOPHOSPHAMIDE. [Suspect]
     Active Substance: CYCLOPHOSPHAMIDE
     Indication: INTERSTITIAL LUNG DISEASE
  5. PREDNISOLONE. [Suspect]
     Active Substance: PREDNISOLONE
     Indication: ANTI-MELANOMA DIFFERENTIATION-ASSOCIATED PROTEIN 5 ANTIBODY POSITIVE
     Dosage: 50 MILLIGRAM DAILY;
     Route: 065
  6. PREDNISOLONE. [Suspect]
     Active Substance: PREDNISOLONE
     Indication: INTERSTITIAL LUNG DISEASE
  7. METHYLPREDNISOLONE. [Suspect]
     Active Substance: METHYLPREDNISOLONE
     Indication: INTERSTITIAL LUNG DISEASE
  8. TACROLIMUS. [Suspect]
     Active Substance: TACROLIMUS
     Indication: ANTI-MELANOMA DIFFERENTIATION-ASSOCIATED PROTEIN 5 ANTIBODY POSITIVE
     Dosage: 1.5?4MG/DAY
     Route: 065
  9. CYCLOPHOSPHAMIDE. [Suspect]
     Active Substance: CYCLOPHOSPHAMIDE
     Indication: DERMATOMYOSITIS
  10. RITUXIMAB. [Suspect]
     Active Substance: RITUXIMAB
     Indication: ANTI-MELANOMA DIFFERENTIATION-ASSOCIATED PROTEIN 5 ANTIBODY POSITIVE
     Dosage: 480MG TWO TIMES PER DAY
     Route: 065
  11. RITUXIMAB. [Suspect]
     Active Substance: RITUXIMAB
     Indication: INTERSTITIAL LUNG DISEASE
  12. TACROLIMUS. [Suspect]
     Active Substance: TACROLIMUS
     Indication: INTERSTITIAL LUNG DISEASE
  13. CYCLOPHOSPHAMIDE. [Suspect]
     Active Substance: CYCLOPHOSPHAMIDE
     Indication: ANTI-MELANOMA DIFFERENTIATION-ASSOCIATED PROTEIN 5 ANTIBODY POSITIVE
     Dosage: THREE TIMES PER DAY
     Route: 065
  14. RITUXIMAB. [Suspect]
     Active Substance: RITUXIMAB
     Indication: DERMATOMYOSITIS
  15. TACROLIMUS. [Suspect]
     Active Substance: TACROLIMUS
     Indication: DERMATOMYOSITIS

REACTIONS (1)
  - Pneumonia pseudomonal [Unknown]
